FAERS Safety Report 17750537 (Version 1)
Quarter: 2020Q2

REPORT INFORMATION
  Report Type: Spontaneous
  Country: US (occurrence: US)
  Receive Date: 20200506
  Receipt Date: 20200506
  Transmission Date: 20200714
  Serious: No
  Sender: FDA-Public Use
  Company Number: None

PATIENT
  Sex: Female

DRUGS (1)
  1. TALTZ [Suspect]
     Active Substance: IXEKIZUMAB
     Indication: PSORIASIS
     Dosage: ?          OTHER FREQUENCY:Q4WKS ;?
     Route: 058
     Dates: start: 20191011

REACTIONS (6)
  - Cough [None]
  - Dry skin [None]
  - Pruritus [None]
  - Rash [None]
  - Therapy interrupted [None]
  - Therapeutic product ineffective [None]
